FAERS Safety Report 6035173-0 (Version None)
Quarter: 2009Q1

REPORT INFORMATION
  Report Type: 
  Country: None (occurrence: None)
  Receive Date: 20090109
  Receipt Date: 20081225
  Transmission Date: 20090719
  Serious: Yes (Life-Threatening)
  Sender: FDA-Public Use
  Company Number: TPH-00127

PATIENT
  Age: 44 Year
  Sex: Female

DRUGS (7)
  1. TRIQUILAR 21 [Suspect]
     Indication: ORAL CONTRACEPTION
     Dosage: 1 DF ORAL
     Route: 048
     Dates: start: 20080301, end: 20081213
  2. ZOLPIDEM TARTRATE [Concomitant]
  3. SEPAZON (CLOXAZOLAM) [Concomitant]
  4. AMPLIT (LOFEPRAMINE HYDROCHLORIDE) [Concomitant]
  5. LEXOTAN (BROMAZEPAM) [Concomitant]
  6. FLOMOX (CEFCAPENE PIVOXIL HYDROCHLORIDE) [Concomitant]
  7. LOXONIN (LOXOPROFEN) [Concomitant]

REACTIONS (8)
  - ASPHYXIA [None]
  - ATRIAL SEPTAL DEFECT [None]
  - CARDIAC ANEURYSM [None]
  - CEREBRAL INFARCTION [None]
  - HEARING IMPAIRED [None]
  - PARADOXICAL EMBOLISM [None]
  - TOOTH EXTRACTION [None]
  - YAWNING [None]
